FAERS Safety Report 6544710-9 (Version None)
Quarter: 2010Q1

REPORT INFORMATION
  Report Type: 
  Country: None (occurrence: None)
  Receive Date: 20100121
  Receipt Date: 20100121
  Transmission Date: 20100710
  Serious: Yes (Hospitalization)
  Sender: FDA-Public Use
  Company Number: PHHO2007DK18942

PATIENT
  Sex: Male
  Weight: 96.4 kg

DRUGS (1)
  1. ALISKIREN ALI+TAB [Suspect]
     Indication: ACUTE MYOCARDIAL INFARCTION
     Dosage: 300 MG, QD
     Route: 048
     Dates: start: 20070509, end: 20071112

REACTIONS (3)
  - HYPOTENSION [None]
  - SYNCOPE [None]
  - UPPER LIMB FRACTURE [None]
